FAERS Safety Report 4430842-8 (Version None)
Quarter: 2004Q3

REPORT INFORMATION
  Report Type: 
  Country: None (occurrence: None)
  Receive Date: 20040823
  Receipt Date: 20040813
  Transmission Date: 20050211
  Serious: Yes (Hospitalization)
  Sender: FDA-Public Use
  Company Number: US-AMGEN-US087261

PATIENT
  Sex: Female
  Weight: 41 kg

DRUGS (1)
  1. SENSIPAR [Suspect]
     Indication: HYPERPARATHYROIDISM SECONDARY
     Route: 048
     Dates: start: 20040615, end: 20040805

REACTIONS (4)
  - ASTHENIA [None]
  - BONE PAIN [None]
  - DIFFICULTY IN WALKING [None]
  - VENOUS ANEURYSM [None]
